FAERS Safety Report 8333214-9 (Version None)
Quarter: 2012Q2

REPORT INFORMATION
  Report Type: 
  Country: None (occurrence: None)
  Receive Date: 20120503
  Receipt Date: 20120430
  Transmission Date: 20120825
  Serious: Yes (Other)
  Sender: FDA-Public Use
  Company Number: US-PFIZER INC-2012106417

PATIENT
  Sex: Male
  Weight: 95 kg

DRUGS (13)
  1. VITAMIN C [Concomitant]
     Indication: LEUKAEMIA
     Dosage: UNK, 2X/DAY
  2. SINGULAIR [Concomitant]
     Indication: SINUS DISORDER
     Dosage: 10 MG, UNK
  3. INLYTA [Suspect]
     Dosage: 5 MG, 2X/DAY
     Route: 048
     Dates: start: 20120426
  4. PREDNISONE [Concomitant]
     Dosage: 30 MG, 3X/DAY
  5. AZELASTINE [Concomitant]
     Dosage: UNK, 2X/DAY
     Route: 045
  6. INLYTA [Suspect]
     Dosage: 5 MG, 1X/DAY
     Route: 048
     Dates: start: 20120401, end: 20120401
  7. TAMSULOSIN [Concomitant]
     Indication: PROSTATOMEGALY
     Dosage: UNK, 2X/DAY
  8. INLYTA [Suspect]
     Indication: RENAL CANCER
     Dosage: 5 MG, 2X/DAY
     Route: 048
     Dates: start: 20120321, end: 20120401
  9. ADVAIR DISKUS 100/50 [Concomitant]
     Dosage: 250/50 MG, 2X/DAY
  10. ALBUTEROL [Concomitant]
     Indication: DYSPNOEA
     Dosage: UNK
  11. IRON [Concomitant]
     Dosage: UNK, 2X/DAY
  12. LORTAB [Concomitant]
     Dosage: 7.5/500 MG, 3X/DAY
  13. CELEBREX [Concomitant]
     Dosage: 200 MG, 1X/DAY

REACTIONS (6)
  - FOOD INTOLERANCE [None]
  - PNEUMONIA [None]
  - DYSPNOEA [None]
  - ORAL FUNGAL INFECTION [None]
  - DIARRHOEA [None]
  - FLATULENCE [None]
